FAERS Safety Report 8523949 (Version 4)
Quarter: 2014Q2

REPORT INFORMATION
  Report Type: Spontaneous
  Country: JP (occurrence: JP)
  Receive Date: 20120420
  Receipt Date: 20140613
  Transmission Date: 20141212
  Serious: Yes (Death, Other)
  Sender: FDA-Public Use
  Company Number: PHHY2012JP031716

PATIENT
  Age: 61 Year
  Sex: Male

DRUGS (9)
  1. NEORAL [Suspect]
     Indication: RENAL TRANSPLANT
     Dosage: 50 MG, DAILY
     Route: 048
     Dates: end: 20110315
  2. NEORAL [Suspect]
     Dosage: 100 MG, DAILY
     Route: 048
     Dates: start: 20101118, end: 20110315
  3. MYCOPHENOLATE MOFETIL [Suspect]
     Indication: RENAL TRANSPLANT
  4. RITUXIMAB [Suspect]
  5. PROGRAF [Suspect]
     Dosage: 2 MG, DAILY
     Route: 048
     Dates: end: 20111117
  6. BREDININ [Suspect]
     Dosage: 100 MG, DAILY
     Route: 048
     Dates: end: 20110308
  7. PREDONINE [Suspect]
     Dosage: 10 MG, DAILY
     Route: 048
     Dates: end: 20110318
  8. PREDONINE [Suspect]
     Dosage: 10 MG, UNK
     Route: 042
  9. INSULIN [Concomitant]
     Dosage: UNK UKN, UNK

REACTIONS (45)
  - Ulcer [Fatal]
  - Large intestinal ulcer [Fatal]
  - Ileal ulcer [Fatal]
  - Duodenal ulcer [Fatal]
  - Pneumonia cytomegaloviral [Fatal]
  - Metabolic acidosis [Fatal]
  - Cytomegalovirus enterocolitis [Fatal]
  - Ileal fistula [Fatal]
  - Colonic fistula [Fatal]
  - Purulence [Fatal]
  - Anal fistula [Fatal]
  - Anal haemorrhage [Fatal]
  - Gastrointestinal haemorrhage [Fatal]
  - Anaemia [Fatal]
  - Small intestinal haemorrhage [Fatal]
  - Diarrhoea [Fatal]
  - Abdominal pain [Fatal]
  - Shock haemorrhagic [Fatal]
  - Melaena [Fatal]
  - Gastrointestinal ulcer haemorrhage [Fatal]
  - Urinary tract disorder [Fatal]
  - Interstitial lung disease [Unknown]
  - Respiratory failure [Unknown]
  - Dyspnoea [Unknown]
  - Apnoea [Unknown]
  - Hypoventilation [Unknown]
  - Acute respiratory failure [Unknown]
  - Circulatory collapse [Unknown]
  - Acute respiratory distress syndrome [Unknown]
  - Cardiac failure acute [Unknown]
  - Delirium [Unknown]
  - Enterococcal infection [Unknown]
  - Hyperglycaemia [Unknown]
  - Septic shock [Unknown]
  - Sepsis [Unknown]
  - Coagulopathy [Unknown]
  - Disseminated intravascular coagulation [Unknown]
  - Systemic inflammatory response syndrome [Unknown]
  - Hypertension [Unknown]
  - Fungal infection [Unknown]
  - Pneumocystis jirovecii pneumonia [Unknown]
  - Kidney transplant rejection [Unknown]
  - Restlessness [Unknown]
  - Oral administration complication [Unknown]
  - Insomnia [Unknown]
